FAERS Safety Report 6743209-4 (Version None)
Quarter: 2010Q2

REPORT INFORMATION
  Report Type: 
  Country: None (occurrence: None)
  Receive Date: 20100527
  Receipt Date: 20100525
  Transmission Date: 20101027
  Serious: Yes (Other)
  Sender: FDA-Public Use
  Company Number: US-TEVA-234791USA

PATIENT
  Sex: Male

DRUGS (9)
  1. QUINAPRIL TABLETS USP 5 MG, 10 MG, 20 MG AND 40 MG [Suspect]
     Indication: BLOOD PRESSURE
     Dosage: 1 TABLET DAILY
     Route: 048
     Dates: start: 20030101
  2. DILTIAZEM HYDROCHLORIDE [Suspect]
     Indication: BLOOD PRESSURE
     Dosage: 1 CAPSULE Q AM
     Route: 048
     Dates: start: 20050101
  3. POTASSIUM CHLORIDE [Suspect]
     Indication: MINERAL SUPPLEMENTATION
     Dosage: 2 CAPSULES BID
     Route: 048
     Dates: start: 20050101
  4. DUTASTERIDE [Suspect]
     Indication: PROSTATOMEGALY
     Dosage: 1 TABLET DAILY
     Route: 048
     Dates: start: 20070101
  5. EZETIMIBE [Suspect]
     Indication: CARDIAC DISORDER
     Dosage: 1 TABLET DAILY
     Route: 048
     Dates: start: 20060101
  6. METOPROLOL TARTRATE [Suspect]
     Indication: BLOOD PRESSURE
     Dosage: 1 TABLET DAILY
     Route: 048
     Dates: start: 20050101
  7. ALPRAZOLAM [Suspect]
     Indication: NERVOUSNESS
     Dosage: 1 TABLET Q PM
     Route: 048
     Dates: start: 19880101
  8. ALFUZOSIN HYDROCHLORIDE [Suspect]
     Indication: DYSURIA
  9. FUROSEMIDE [Suspect]
     Indication: DRUG USE FOR UNKNOWN INDICATION

REACTIONS (12)
  - ABDOMINAL DISCOMFORT [None]
  - DEHYDRATION [None]
  - DEMENTIA [None]
  - DIARRHOEA [None]
  - DIZZINESS [None]
  - ERYTHEMA [None]
  - EYE IRRITATION [None]
  - FALL [None]
  - HEADACHE [None]
  - NAUSEA [None]
  - OEDEMA PERIPHERAL [None]
  - WRIST FRACTURE [None]
